FAERS Safety Report 6800587 (Version 9)
Quarter: 2012Q4

REPORT INFORMATION
  Report Type: 
  Country: JP (occurrence: JP)
  Receive Date: 20081030
  Receipt Date: 20120910
  Transmission Date: 20130627
  Serious: Yes (Other)
  Sender: FDA-Public Use
  Company Number: JP-B.I. PHARMACEUTICALS,INC./RIDGEFIELD-2008-BP-16441NB

PATIENT
  Age: 32 Year
  Sex: Male
  Weight: 57 kg

DRUGS (12)
  1. MICARDIS [Suspect]
     Indication: HYPERTENSION
     Dosage: 20 mg
     Route: 048
     Dates: start: 20070608
  2. MICARDIS [Suspect]
     Dosage: 40 mg
     Route: 048
     Dates: start: 20070624, end: 20070801
  3. MICARDIS [Suspect]
     Dosage: 80 mg
     Route: 048
     Dates: start: 20070802
  4. PROGRAF [Suspect]
     Indication: LUPUS NEPHRITIS
     Dosage: 1.5 mg
     Route: 048
     Dates: start: 20070531
  5. PROGRAF [Suspect]
     Dosage: 2 mg
     Route: 048
     Dates: start: 20070612
  6. PREDNISOLONE [Suspect]
     Indication: LUPUS NEPHRITIS
     Dosage: 50 mg
     Route: 048
     Dates: start: 20070531
  7. WARFARIN [Concomitant]
     Dosage: 2 mg
     Route: 048
  8. ZANTAC [Concomitant]
     Indication: PROPHYLAXIS
     Dosage: 300 mg
     Route: 048
  9. ALFAROL [Concomitant]
     Indication: PROPHYLAXIS
     Dosage: 0.5 mcg
     Route: 048
  10. MEVALOTIN [Concomitant]
     Dosage: 10 mg
     Route: 048
     Dates: start: 20070829
  11. BONALON 5MG [Concomitant]
     Indication: PROPHYLAXIS
     Route: 048
     Dates: end: 20120321
  12. METHYCOBAL [Concomitant]
     Dosage: 1500 mcg
     Route: 048
     Dates: start: 20070616, end: 20080116

REACTIONS (11)
  - Herpes zoster [Recovered/Resolved]
  - Renal impairment [Not Recovered/Not Resolved]
  - Upper respiratory tract inflammation [Recovered/Resolved]
  - Oral candidiasis [Recovered/Resolved]
  - Upper respiratory tract inflammation [Recovered/Resolved]
  - White blood cell count increased [Recovered/Resolved]
  - Upper respiratory tract inflammation [Recovered/Resolved]
  - Neoplasm skin [Recovered/Resolved]
  - Bronchitis [Recovered/Resolved]
  - Upper respiratory tract inflammation [Recovered/Resolved]
  - Influenza [Recovered/Resolved]
